FAERS Safety Report 8887738 (Version 1)
Quarter: 2012Q4

REPORT INFORMATION
  Report Type: 
  Country: US (occurrence: US)
  Receive Date: 20121106
  Receipt Date: 20121106
  Transmission Date: 20130627
  Serious: Yes (Other)
  Sender: FDA-Public Use
  Company Number: US-ELI_LILLY_AND_COMPANY-US201211000044

PATIENT
  Sex: Female

DRUGS (6)
  1. HUMATROPE [Suspect]
     Indication: HYPOTHALAMO-PITUITARY DISORDER
     Dosage: UNK
     Dates: start: 2009
  2. MAXALT                                  /NET/ [Concomitant]
  3. RELPAX [Concomitant]
  4. SUMATRIPTAN [Concomitant]
  5. BENAZEPRIL [Concomitant]
     Indication: HYPERTENSION
  6. LEVOTHYROXINE [Concomitant]
     Indication: HYPOTHYROIDISM

REACTIONS (6)
  - Loss of consciousness [Unknown]
  - Headache [Unknown]
  - Skin atrophy [Unknown]
  - Alopecia [Unknown]
  - Onychoclasis [Unknown]
  - Stress [Unknown]
